FAERS Safety Report 4457948-1 (Version None)
Quarter: 2004Q3

REPORT INFORMATION
  Report Type: 
  Country: None (occurrence: None)
  Receive Date: 20040924
  Receipt Date: 20040812
  Transmission Date: 20050211
  Serious: Yes (Hospitalization, Other)
  Sender: FDA-Public Use
  Company Number: US-BRISTOL-MYERS SQUIBB COMPANY-12669289

PATIENT
  Age: 56 Year
  Sex: Female
  Weight: 81 kg

DRUGS (8)
  1. ABILIFY [Suspect]
     Indication: BIPOLAR DISORDER
     Route: 048
     Dates: start: 20040123, end: 20040902
  2. ABILIFY [Suspect]
     Indication: GRANDIOSITY
     Route: 048
     Dates: start: 20040123, end: 20040902
  3. ABILIFY [Suspect]
     Indication: ABNORMAL BEHAVIOUR
     Route: 048
     Dates: start: 20040123, end: 20040902
  4. ABILIFY [Suspect]
     Indication: EXCITABILITY
     Route: 048
     Dates: start: 20040123, end: 20040902
  5. DEPAKOTE [Concomitant]
     Dosage: TAKEN 4-5 YEARS
     Dates: end: 20040524
  6. ZYPREXA [Concomitant]
     Dosage: SEVERAL YEARS
     Dates: end: 20040524
  7. ANTIBIOTIC [Concomitant]
     Indication: URINARY TRACT INFECTION
  8. ANTIBIOTIC [Concomitant]
     Indication: NASOPHARYNGITIS

REACTIONS (1)
  - BREAST CANCER [None]
